FAERS Safety Report 7064051-3 (Version None)
Quarter: 2010Q4

REPORT INFORMATION
  Report Type: 
  Country: None (occurrence: None)
  Receive Date: 20101026
  Receipt Date: 20101013
  Transmission Date: 20110411
  Serious: Yes (Hospitalization)
  Sender: FDA-Public Use
  Company Number: US-MYLANLABS-2010S1019070

PATIENT
  Age: 28 Year
  Sex: Female

DRUGS (6)
  1. CITALOPRAM HYDROBROMIDE [Suspect]
     Indication: DEPRESSION
     Route: 065
  2. SCOPOLAMINE [Suspect]
     Indication: PROPHYLAXIS OF NAUSEA AND VOMITING
     Route: 062
  3. PROPOFOL [Concomitant]
     Indication: ANAESTHESIA
     Route: 042
  4. MIDAZOLAM [Concomitant]
     Indication: SEDATION
     Route: 065
  5. DEXAMETHASONE [Concomitant]
     Route: 065
  6. ONDANSETRON [Concomitant]
     Route: 065

REACTIONS (1)
  - ANTICHOLINERGIC SYNDROME [None]
